FAERS Safety Report 7938425-X (Version None)
Quarter: 2011Q4

REPORT INFORMATION
  Report Type: 
  Country: None (occurrence: None)
  Receive Date: 20111123
  Receipt Date: 20111109
  Transmission Date: 20120403
  Serious: Yes (Hospitalization)
  Sender: FDA-Public Use
  Company Number: US-WATSON-2011-19111

PATIENT
  Sex: Female
  Weight: 90.703 kg

DRUGS (2)
  1. NECON 1/35-28 (WATSON LABORATORIES) [Suspect]
     Indication: ORAL CONTRACEPTION
     Dosage: ONE TABLET DAILY
     Route: 048
     Dates: start: 20060101, end: 20100901
  2. NORTREL                            /00318901/ [Suspect]
     Indication: ORAL CONTRACEPTION
     Dosage: ONE TABLET DAILY
     Route: 048
     Dates: start: 20100901, end: 20110129

REACTIONS (9)
  - SUBARACHNOID HAEMORRHAGE [None]
  - MONOPLEGIA [None]
  - TENSION HEADACHE [None]
  - CONVULSION [None]
  - CEREBRAL HAEMORRHAGE [None]
  - CONFUSIONAL STATE [None]
  - MYALGIA [None]
  - MIGRAINE [None]
  - VISUAL ACUITY REDUCED [None]
